FAERS Safety Report 7417991-7 (Version None)
Quarter: 2011Q2

REPORT INFORMATION
  Report Type: 
  Country: None (occurrence: None)
  Receive Date: 20110415
  Receipt Date: 20110411
  Transmission Date: 20111010
  Serious: Yes (Other)
  Sender: FDA-Public Use
  Company Number: US-ROCHE-756585

PATIENT
  Sex: Female
  Weight: 52.2 kg

DRUGS (3)
  1. ACCUTANE [Suspect]
     Indication: ACNE
     Route: 048
     Dates: start: 20010801, end: 20050601
  2. ORTHO TRI-CYCLEN [Concomitant]
  3. MINOCYCLINE [Concomitant]
     Indication: ACNE

REACTIONS (7)
  - CROHN'S DISEASE [None]
  - DIVERTICULUM INTESTINAL [None]
  - IRRITABLE BOWEL SYNDROME [None]
  - COLONIC POLYP [None]
  - MELANOCYTIC NAEVUS [None]
  - ACNE [None]
  - SUNBURN [None]
